FAERS Safety Report 20681762 (Version 2)
Quarter: 2022Q2

REPORT INFORMATION
  Report Type: Spontaneous
  Country: US (occurrence: None)
  Receive Date: 20220407
  Receipt Date: 20220603
  Transmission Date: 20220721
  Serious: No
  Sender: FDA-Public Use
  Company Number: 2022A125580

PATIENT
  Age: 24818 Day
  Sex: Male
  Weight: 72.6 kg

DRUGS (1)
  1. FASENRA [Suspect]
     Active Substance: BENRALIZUMAB
     Indication: Asthma
     Dosage: 30MG/ML EVERY EIGHT WEEKS
     Route: 058

REACTIONS (4)
  - Device malfunction [Unknown]
  - Device leakage [Unknown]
  - Device issue [Unknown]
  - Device issue [Unknown]
